FAERS Safety Report 16759522 (Version 1)
Quarter: 2019Q4

REPORT INFORMATION
  Report Type: Spontaneous
  Country: US (occurrence: US)
  Receive Date: 20190829
  Receipt Date: 20190829
  Transmission Date: 20200122
  Serious: No
  Sender: FDA-Public Use
  Company Number: None

PATIENT
  Age: 47 Year
  Sex: Female
  Weight: 73.8 kg

DRUGS (11)
  1. VISTARIL [Concomitant]
     Active Substance: HYDROXYZINE PAMOATE
  2. EXCEDRIN MIGRAINE [Concomitant]
     Active Substance: ACETAMINOPHEN\ASPIRIN\CAFFEINE
  3. PEPCID [Concomitant]
     Active Substance: FAMOTIDINE
  4. BEST CHOICE MEDICATED CALAMINE [Suspect]
     Active Substance: PRAMOXINE HYDROCHLORIDE\ZINC OXIDE
     Indication: MITE ALLERGY
     Route: 061
     Dates: start: 20190827, end: 20190828
  5. PREDNISONE 40 MG P.O. Q.D. [Concomitant]
  6. CLARITIN [Concomitant]
     Active Substance: LORATADINE
  7. BENADRYL [Concomitant]
     Active Substance: DIPHENHYDRAMINE HYDROCHLORIDE
  8. GABAPENTIN 600 MG TID [Concomitant]
  9. MELOXICAM 15 MG Q.D. [Concomitant]
  10. EMGALITY [Concomitant]
     Active Substance: GALCANEZUMAB-GNLM
  11. NORCO 7.5/325 P.R.N. [Concomitant]

REACTIONS (2)
  - Anaphylactic reaction [None]
  - Hypersensitivity [None]

NARRATIVE: CASE EVENT DATE: 20190827
